FAERS Safety Report 4724975-6 (Version None)
Quarter: 2005Q3

REPORT INFORMATION
  Report Type: 
  Country: None (occurrence: None)
  Receive Date: 20050726
  Receipt Date: 20050719
  Transmission Date: 20060218
  Serious: Yes (Hospitalization, Disabling)
  Sender: FDA-Public Use
  Company Number: HR-ROCHE-411147

PATIENT

DRUGS (2)
  1. PEGASYS [Suspect]
     Route: 058
     Dates: start: 20050330, end: 20050630
  2. COPEGUS [Concomitant]
     Dosage: DAILY DOSING.
     Route: 048
     Dates: start: 20050330, end: 20050630

REACTIONS (2)
  - HYPERTENSION [None]
  - VISUAL ACUITY REDUCED [None]
